FAERS Safety Report 10163449 (Version 1)
Quarter: 2014Q2

REPORT INFORMATION
  Report Type: Spontaneous
  Country: US (occurrence: US)
  Receive Date: 20140509
  Receipt Date: 20140509
  Transmission Date: 20141212
  Serious: Yes (Hospitalization)
  Sender: FDA-Public Use
  Company Number: US-JNJFOC-20140504831

PATIENT
  Age: 64 Year
  Sex: Female
  Weight: 70 kg

DRUGS (14)
  1. IMBRUVICA [Suspect]
     Indication: CHRONIC LYMPHOCYTIC LEUKAEMIA
     Route: 048
     Dates: start: 20140326
  2. IMBRUVICA [Suspect]
     Indication: CHRONIC LYMPHOCYTIC LEUKAEMIA
     Route: 048
     Dates: start: 20140402, end: 20140422
  3. KETOCONAZOLE [Concomitant]
     Dosage: 2% TIW X 4 WEEKS THEN INTERMITTENT
  4. SIMVASTATIN [Concomitant]
  5. ZYRTEC [Concomitant]
  6. ELIDEL [Concomitant]
     Route: 061
  7. VITAMIN D3 [Concomitant]
     Dosage: 1000 UNITS DAILY
  8. NASONEX [Concomitant]
     Dosage: 2 SPRAYS DAILY
     Route: 045
  9. CITALOPRAM [Concomitant]
  10. DORZOLAMIDE [Concomitant]
     Dosage: 1 DROP LEFT EYE BID
     Route: 047
  11. LORAZEPAM [Concomitant]
  12. VENTOLIN [Concomitant]
     Dosage: EVERY 6 HOURS PRN
  13. LATANOPROST [Concomitant]
     Dosage: 1 DROP BOTH EYES
     Route: 047
  14. MONTELUKAST [Concomitant]

REACTIONS (2)
  - Meningioma [Recovering/Resolving]
  - Subdural haemorrhage [Recovering/Resolving]
